FAERS Safety Report 6119646-8 (Version None)
Quarter: 2009Q1

REPORT INFORMATION
  Report Type: 
  Country: None (occurrence: None)
  Receive Date: 20090316
  Receipt Date: 20090304
  Transmission Date: 20090719
  Serious: No
  Sender: FDA-Public Use
  Company Number: US-ASTRAZENECA-2009UW05956

PATIENT
  Age: 53 Year
  Sex: Female
  Weight: 65.8 kg

DRUGS (7)
  1. SEROQUEL [Suspect]
     Indication: INSOMNIA
     Dosage: 400-600 MG DAILY
     Route: 048
     Dates: start: 20070101
  2. AMBIEN [Concomitant]
     Indication: INSOMNIA
  3. CELLCEPT [Concomitant]
     Indication: LIVER TRANSPLANT REJECTION
  4. PREVACID [Concomitant]
     Indication: DYSPEPSIA
  5. PEG-INTRON [Concomitant]
     Indication: HEPATITIS C
  6. RIBAVIRIN [Concomitant]
     Indication: HEPATITIS C
  7. PROGRAS [Concomitant]
     Indication: LIVER TRANSPLANT REJECTION

REACTIONS (2)
  - ANAEMIA [None]
  - SOMNAMBULISM [None]
